FAERS Safety Report 24052170 (Version 1)
Quarter: 2024Q3

REPORT INFORMATION
  Report Type: Other
  Country: US (occurrence: US)
  Receive Date: 20240704
  Receipt Date: 20240704
  Transmission Date: 20241017
  Serious: Yes (Other)
  Sender: FAGRON COMPOUNDING SERVICES D/B/A FAGRON STERILE SERVICES, WICHITA, KS
  Company Number: US-Fagron Sterile Services-2158821

PATIENT

DRUGS (1)
  1. CYCLOPENTOLATE\KETOROLAC\PHENYLEPHRINE\TROPICAMIDE [Suspect]
     Active Substance: CYCLOPENTOLATE\KETOROLAC\PHENYLEPHRINE\TROPICAMIDE

REACTIONS (1)
  - Adverse reaction [Recovered/Resolved]
